FAERS Safety Report 6759710-3 (Version None)
Quarter: 2010Q2

REPORT INFORMATION
  Report Type: 
  Country: None (occurrence: None)
  Receive Date: 20100608
  Receipt Date: 20100525
  Transmission Date: 20101027
  Serious: Yes (Hospitalization, Other)
  Sender: FDA-Public Use
  Company Number: US-BAYER-200943377NA

PATIENT
  Age: 43 Year
  Sex: Female
  Weight: 124 kg

DRUGS (14)
  1. YAZ [Suspect]
     Indication: DRUG USE FOR UNKNOWN INDICATION
     Dates: start: 20070501, end: 20071215
  2. HUMALOG [Concomitant]
     Indication: DIABETES MELLITUS
     Dates: start: 20070101
  3. LANTUS [Concomitant]
     Indication: DIABETES MELLITUS
     Dates: start: 20070101
  4. SUCRALFATE [Concomitant]
     Dates: start: 20071101, end: 20071201
  5. PRILOSEC [Concomitant]
     Indication: DYSPEPSIA
     Dates: start: 20070101, end: 20080101
  6. RANITIDINE [Concomitant]
     Dates: start: 20090101
  7. METFORMIN [Concomitant]
     Indication: DIABETES MELLITUS
     Dates: start: 20090101
  8. LISINOPRIL [Concomitant]
     Dates: start: 20070101
  9. LISINO-HCYZ (ACE) [Concomitant]
     Dates: start: 20070101
  10. BENICAR [Concomitant]
     Dates: start: 20070101
  11. DOXYCYCLINE [Concomitant]
     Dates: start: 20070101
  12. DYNACIRC [Concomitant]
     Dates: start: 20070101
  13. CIPROFLOXACIN [Concomitant]
     Dates: start: 20080101
  14. SMZ/TMP DS [Concomitant]
     Dates: start: 20080101

REACTIONS (4)
  - CHOLELITHIASIS [None]
  - DEEP VEIN THROMBOSIS [None]
  - OEDEMA PERIPHERAL [None]
  - PAIN IN EXTREMITY [None]
